FAERS Safety Report 6165874-5 (Version None)
Quarter: 2009Q2

REPORT INFORMATION
  Report Type: 
  Country: None (occurrence: None)
  Receive Date: 20090423
  Receipt Date: 20090420
  Transmission Date: 20091009
  Serious: Yes (Death)
  Sender: FDA-Public Use
  Company Number: CA-MERCK-0807CAN00125

PATIENT
  Age: 76 Year
  Sex: Male

DRUGS (7)
  1. HYZAAR [Suspect]
     Indication: ESSENTIAL HYPERTENSION
     Route: 048
     Dates: start: 20080423, end: 20080528
  2. HYZAAR [Suspect]
     Route: 048
     Dates: start: 20080529, end: 20081210
  3. LISINOPRIL [Concomitant]
     Indication: HYPERTENSION
     Route: 065
     Dates: start: 19950905, end: 20080421
  4. ROSIGLITAZONE MALEATE [Concomitant]
     Indication: DIABETES MELLITUS
     Route: 065
     Dates: start: 20020625
  5. PANTOPRAZOLE SODIUM [Concomitant]
     Indication: GASTROOESOPHAGEAL REFLUX DISEASE
     Route: 065
     Dates: start: 20060421
  6. LEVOTHYROXINE SODIUM [Concomitant]
     Indication: HYPOTHYROIDISM
     Route: 065
     Dates: start: 20000627
  7. ATORVASTATIN CALCIUM [Concomitant]
     Indication: HYPERCHOLESTEROLAEMIA
     Route: 065
     Dates: start: 20020616

REACTIONS (8)
  - ACUTE MYOCARDIAL INFARCTION [None]
  - BARRETT'S OESOPHAGUS [None]
  - BLOOD CREATININE INCREASED [None]
  - CARDIAC MURMUR [None]
  - CRITICAL ILLNESS POLYNEUROPATHY [None]
  - MULTIPLE MYELOMA [None]
  - PNEUMONIA KLEBSIELLA [None]
  - RENAL FAILURE ACUTE [None]
